FAERS Safety Report 7067226-2 (Version None)
Quarter: 2010Q4

REPORT INFORMATION
  Report Type: 
  Country: None (occurrence: None)
  Receive Date: 20101028
  Receipt Date: 20101014
  Transmission Date: 20110411
  Serious: No
  Sender: FDA-Public Use
  Company Number: US-BIOGENIDEC-2010BI035697

PATIENT
  Age: 44 Year
  Sex: Female

DRUGS (1)
  1. AVONEX [Suspect]
     Indication: MULTIPLE SCLEROSIS
     Route: 030
     Dates: start: 20100827

REACTIONS (5)
  - CONSTIPATION [None]
  - DIPLOPIA [None]
  - HYPOAESTHESIA [None]
  - RASH [None]
  - URINARY INCONTINENCE [None]
